FAERS Safety Report 24627251 (Version 1)
Quarter: 2024Q4

REPORT INFORMATION
  Report Type: Report from Study
  Country: ZA (occurrence: ZA)
  Receive Date: 20241116
  Receipt Date: 20241116
  Transmission Date: 20250115
  Serious: Yes (Other)
  Sender: ALEXION PHARMACEUTICALS
  Company Number: ZA-AstraZeneca-CH-00746032A

PATIENT
  Age: 83 Year

DRUGS (22)
  1. BUDESONIDE\FORMOTEROL [Suspect]
     Active Substance: BUDESONIDE\FORMOTEROL
     Dosage: UNK
  2. BUDESONIDE\FORMOTEROL [Suspect]
     Active Substance: BUDESONIDE\FORMOTEROL
     Dosage: UNK
  3. BUDESONIDE\FORMOTEROL [Suspect]
     Active Substance: BUDESONIDE\FORMOTEROL
     Dosage: UNK
  4. BUDESONIDE\FORMOTEROL [Suspect]
     Active Substance: BUDESONIDE\FORMOTEROL
     Dosage: UNK
  5. PROSPAN COUGH 7 MG [Concomitant]
  6. PROSPAN COUGH 7 MG [Concomitant]
     Route: 065
  7. TOPRAZ 10 MG [Concomitant]
  8. TOPRAZ 10 MG [Concomitant]
     Route: 065
  9. THEOPHYLLINE ANH 200 KIARA 200 MG [Concomitant]
  10. THEOPHYLLINE ANH 200 KIARA 200 MG [Concomitant]
     Route: 065
  11. BE-TABS PREDNISONE 5 MG [Concomitant]
  12. BE-TABS PREDNISONE 5 MG [Concomitant]
     Route: 065
  13. PROBIFLORA INTENSIVE [Concomitant]
  14. PROBIFLORA INTENSIVE [Concomitant]
     Route: 065
  15. KLARITHRAN 500 MG [Concomitant]
  16. KLARITHRAN 500 MG [Concomitant]
     Route: 065
  17. BUDONEB 0.5 MG [Concomitant]
  18. BUDONEB 0.5 MG [Concomitant]
     Route: 065
  19. IPRABUT [Concomitant]
  20. IPRABUT [Concomitant]
     Route: 065
  21. SANDOZ ZOPICLONE 7.5 MG [Concomitant]
  22. SANDOZ ZOPICLONE 7.5 MG [Concomitant]
     Route: 065

REACTIONS (2)
  - Breast cancer [Unknown]
  - Blood pressure increased [Unknown]
